FAERS Safety Report 6653707-X (Version None)
Quarter: 2010Q1

REPORT INFORMATION
  Report Type: 
  Country: None (occurrence: None)
  Receive Date: 20100326
  Receipt Date: 20090423
  Transmission Date: 20100710
  Serious: Yes (Death)
  Sender: FDA-Public Use
  Company Number: GB-PFIZER INC-2009202853

PATIENT
  Age: 66 Year
  Sex: Male
  Weight: 80 kg

DRUGS (7)
  1. IRINOTECAN HCL [Suspect]
     Indication: COLORECTAL CANCER
     Dosage: 350 MG, EVERY 2 WEEKS CYCLIC
     Route: 042
     Dates: start: 20080626
  2. FLUOROURACIL [Suspect]
     Indication: COLORECTAL CANCER
     Dosage: 800 MG, LOADING EVERY 2 WEEKS
     Route: 040
     Dates: start: 20080626
  3. FLUOROURACIL [Suspect]
     Dosage: 4800 MG, INFUSION EVERY 2 WEEKS CYCLIC
     Route: 042
     Dates: start: 20080626
  4. CALCIUM FOLINATE [Suspect]
     Indication: COLORECTAL CANCER
     Dosage: 400 MG, EVERY 2 WEEKS CYCLIC
     Route: 042
     Dates: start: 20080626
  5. BLINDED *NO SUBJECT DRUG [Suspect]
     Indication: COLORECTAL CANCER
     Dosage: DAILY
     Dates: start: 20080626
  6. BLINDED *PLACEBO [Suspect]
     Indication: COLORECTAL CANCER
     Dosage: DAILY
     Dates: start: 20080626
  7. BLINDED SUNITINIB MALATE [Suspect]
     Indication: COLORECTAL CANCER
     Dosage: DAILY
     Dates: start: 20080626

REACTIONS (2)
  - MYOCARDIAL INFARCTION [None]
  - PULMONARY EMBOLISM [None]
